FAERS Safety Report 13782561 (Version 1)
Quarter: 2017Q3

REPORT INFORMATION
  Report Type: Spontaneous
  Country: US (occurrence: US)
  Receive Date: 20170724
  Receipt Date: 20170724
  Transmission Date: 20171127
  Serious: No
  Sender: FDA-Public Use
  Company Number: US-APOTEX-2017AP009635

PATIENT
  Age: 49 Year
  Sex: Female

DRUGS (1)
  1. SUMATRIPTAN TABLETS USP [Suspect]
     Active Substance: SUMATRIPTAN
     Indication: HEADACHE
     Dosage: 25 MG, QD
     Route: 048

REACTIONS (1)
  - Feeling abnormal [Unknown]
